FAERS Safety Report 6696710-6 (Version None)
Quarter: 2010Q2

REPORT INFORMATION
  Report Type: 
  Country: None (occurrence: None)
  Receive Date: 20100421
  Receipt Date: 20091113
  Transmission Date: 20101027
  Serious: No
  Sender: FDA-Public Use
  Company Number: US-000047

PATIENT
  Sex: Female
  Weight: 63.5036 kg

DRUGS (5)
  1. KUVAN [Suspect]
     Indication: PHENYLKETONURIA
     Dosage: (1400 MG ORAL), (700 MG ORAL)
     Route: 048
     Dates: start: 20091019, end: 20091107
  2. KUVAN [Suspect]
     Indication: PHENYLKETONURIA
     Dosage: (1400 MG ORAL), (700 MG ORAL)
     Route: 048
     Dates: start: 20091109, end: 20091111
  3. KUVAN [Suspect]
  4. ORTHO TRI-CYCLEN LO [Concomitant]
  5. CALCIUM [Concomitant]

REACTIONS (3)
  - PRURITUS [None]
  - RASH [None]
  - SCAR [None]
